FAERS Safety Report 19074189 (Version 1)
Quarter: 2021Q1

REPORT INFORMATION
  Report Type: Spontaneous
  Country: DE (occurrence: DE)
  Receive Date: 20210330
  Receipt Date: 20210330
  Transmission Date: 20210420
  Serious: Yes (Life-Threatening, Other)
  Sender: FDA-Public Use
  Company Number: DE-AMGEN-DEUSP2021046934

PATIENT
  Age: 83 Year
  Sex: Male
  Weight: 75 kg

DRUGS (4)
  1. BEVACIZUMAB. [Suspect]
     Active Substance: BEVACIZUMAB
     Indication: HEPATOCELLULAR CARCINOMA
     Dosage: 15 MILLIGRAM/KILOGRAM, Q3WK
     Route: 042
     Dates: start: 20200921, end: 20201102
  2. OMNIC [Concomitant]
     Active Substance: TAMSULOSIN HYDROCHLORIDE
     Dosage: 0.4 MILLIGRAM, QD
     Route: 048
  3. PENTOXIFYLLIN [Concomitant]
     Active Substance: PENTOXIFYLLINE
     Dosage: UNK
     Route: 048
  4. ATEZOLIZUMAB. [Suspect]
     Active Substance: ATEZOLIZUMAB
     Indication: HEPATOCELLULAR CARCINOMA
     Dosage: 1200 MILLIGRAM, Q3WK
     Route: 042
     Dates: start: 20200921, end: 20201102

REACTIONS (2)
  - Off label use [Unknown]
  - Oesophageal varices haemorrhage [Recovered/Resolved with Sequelae]

NARRATIVE: CASE EVENT DATE: 20201116
